FAERS Safety Report 7554320-2 (Version None)
Quarter: 2011Q2

REPORT INFORMATION
  Report Type: 
  Country: None (occurrence: None)
  Receive Date: 20110617
  Receipt Date: 20110613
  Transmission Date: 20111010
  Serious: Yes (Hospitalization, Other)
  Sender: FDA-Public Use
  Company Number: CA-ABBOTT-11P-028-0695615-00

PATIENT
  Sex: Female
  Weight: 70.37 kg

DRUGS (8)
  1. MORPHINE [Concomitant]
     Indication: BACK PAIN
     Route: 048
     Dates: start: 19960101
  2. GABAPENTIN [Concomitant]
     Indication: PAIN
     Route: 048
     Dates: start: 19980101
  3. GRAVOL TAB [Concomitant]
     Indication: PRODUCT USED FOR UNKNOWN INDICATION
  4. BACLOFEN [Concomitant]
     Indication: MUSCLE SPASMS
     Route: 048
     Dates: start: 19980101
  5. MORPHINE SULFATE [Concomitant]
     Indication: PAIN
     Route: 048
  6. HUMIRA [Suspect]
     Indication: CROHN'S DISEASE
     Route: 058
     Dates: start: 20101008, end: 20101210
  7. ZOFRAN [Concomitant]
     Indication: NAUSEA
     Route: 048
     Dates: start: 20100501
  8. MORPHINE SULFATE [Concomitant]
     Indication: PAIN
     Dosage: AS NEEDED
     Route: 048

REACTIONS (6)
  - DRUG INEFFECTIVE [None]
  - LOSS OF CONSCIOUSNESS [None]
  - INTESTINAL OBSTRUCTION [None]
  - CONVULSION [None]
  - GASTROINTESTINAL OBSTRUCTION [None]
  - ARRHYTHMIA [None]
